FAERS Safety Report 7395405-3 (Version None)
Quarter: 2011Q2

REPORT INFORMATION
  Report Type: 
  Country: None (occurrence: None)
  Receive Date: 20110405
  Receipt Date: 20110405
  Transmission Date: 20111010
  Serious: Yes (Other)
  Sender: FDA-Public Use
  Company Number: ES-PFIZER INC-2010037007

PATIENT
  Age: 60 Year
  Sex: Male

DRUGS (3)
  1. NEURONTIN [Suspect]
     Indication: PAIN
     Dosage: 400 MG, 1X/DAY
     Dates: start: 20100201
  2. METOJECT [Concomitant]
     Dosage: 15 MG, UNK
  3. DEFLAZACORT [Concomitant]
     Dosage: UNK

REACTIONS (4)
  - TONGUE ULCERATION [None]
  - PRURITUS GENERALISED [None]
  - GLOSSODYNIA [None]
  - RASH [None]
